FAERS Safety Report 19569275 (Version 2)
Quarter: 2021Q3

REPORT INFORMATION
  Report Type: Report from Study
  Country: US (occurrence: US)
  Receive Date: 20210716
  Receipt Date: 20210816
  Transmission Date: 20211014
  Serious: Yes (Hospitalization)
  Sender: FDA-Public Use
  Company Number: US-VERTEX PHARMACEUTICALS-2021-010468

PATIENT
  Sex: Female

DRUGS (1)
  1. TRIKAFTA [Suspect]
     Active Substance: ELEXACAFTOR\IVACAFTOR\TEZACAFTOR
     Indication: CYSTIC FIBROSIS
     Dosage: 2 ORANGE TABLETS(100MG ELEXA/50MG TEZA/75MG IVA)AM AND 1 BLUE TABLET(150MG IVA)PM
     Route: 048
     Dates: start: 20210423

REACTIONS (5)
  - Constipation [Recovered/Resolved]
  - Pulmonary function test decreased [Unknown]
  - Pulmonary pain [Recovered/Resolved]
  - Pneumonitis [Unknown]
  - Intestinal obstruction [Unknown]

NARRATIVE: CASE EVENT DATE: 2021
